FAERS Safety Report 11192485 (Version 1)
Quarter: 2015Q2

REPORT INFORMATION
  Report Type: Spontaneous
  Country: FR (occurrence: FR)
  Receive Date: 20150616
  Receipt Date: 20150616
  Transmission Date: 20150821
  Serious: Yes (Disabling)
  Sender: FDA-Public Use
  Company Number: FR-SA-2015SA080916

PATIENT
  Age: 82 Year
  Sex: Male

DRUGS (11)
  1. PLAVIX [Suspect]
     Active Substance: CLOPIDOGREL BISULFATE
     Route: 048
     Dates: end: 20150328
  2. PERINDOPRIL [Concomitant]
     Active Substance: PERINDOPRIL
  3. TAHOR [Concomitant]
     Active Substance: ATORVASTATIN CALCIUM
  4. INSPRA [Concomitant]
     Active Substance: EPLERENONE
  5. PREVISCAN [Interacting]
     Active Substance: FLUINDIONE
     Indication: ATRIAL FIBRILLATION
     Route: 048
     Dates: end: 20150328
  6. BISOCE [Concomitant]
     Active Substance: BISOPROLOL
  7. INEXIUM [Concomitant]
     Active Substance: ESOMEPRAZOLE
  8. ZOPICLONE [Concomitant]
     Active Substance: ZOPICLONE
  9. LANTUS [Concomitant]
     Active Substance: INSULIN GLARGINE
  10. DIFFU K [Concomitant]
     Active Substance: POTASSIUM CHLORIDE
  11. LASILIX [Concomitant]
     Active Substance: FUROSEMIDE

REACTIONS (4)
  - Hemiplegia [Not Recovered/Not Resolved]
  - Cerebral haematoma [Not Recovered/Not Resolved]
  - Drug interaction [Unknown]
  - Traumatic haematoma [Not Recovered/Not Resolved]

NARRATIVE: CASE EVENT DATE: 20150328
